FAERS Safety Report 4494027-1 (Version None)
Quarter: 2004Q4

REPORT INFORMATION
  Report Type: 
  Country: None (occurrence: None)
  Receive Date: 20041105
  Receipt Date: 20041027
  Transmission Date: 20050328
  Serious: Yes (Hospitalization)
  Sender: FDA-Public Use
  Company Number: 200414081FR

PATIENT
  Age: 60 Year
  Sex: Male

DRUGS (13)
  1. LASILIX 40 MG [Suspect]
     Route: 048
  2. VOLTARENE EMUGEL 1 PER CENT [Suspect]
     Route: 003
  3. APROVEL [Suspect]
     Route: 048
     Dates: start: 20040112
  4. ZESTRIL [Suspect]
     Route: 048
  5. SECTRAL [Concomitant]
  6. FOLIC ACID [Concomitant]
     Route: 048
  7. INSUMAN [Concomitant]
     Route: 058
  8. NIFEDIPINE [Concomitant]
     Route: 048
  9. ASPEGIC 325 [Concomitant]
     Route: 048
  10. ELISOR [Concomitant]
     Route: 048
  11. MODOPAR 62.5 [Concomitant]
  12. STILNOX [Concomitant]
     Route: 048
  13. FORLAX [Concomitant]
     Route: 048

REACTIONS (2)
  - DIALYSIS [None]
  - RENAL FAILURE ACUTE [None]
